FAERS Safety Report 18220699 (Version 2)
Quarter: 2020Q4

REPORT INFORMATION
  Report Type: Report from Study
  Country: None (occurrence: US)
  Receive Date: 20200902
  Receipt Date: 20201005
  Transmission Date: 20210113
  Serious: Yes (Other)
  Sender: FDA-Public Use
  Company Number: US-ABBVIE-20K-163-3541600-00

PATIENT
  Sex: Female

DRUGS (2)
  1. HUMIRA [Suspect]
     Active Substance: ADALIMUMAB
     Indication: RHEUMATOID ARTHRITIS
     Route: 058
     Dates: start: 200212, end: 2015
  2. METHOTREXATE. [Suspect]
     Active Substance: METHOTREXATE
     Indication: RHEUMATOID ARTHRITIS
     Route: 065
     Dates: start: 2002, end: 2012

REACTIONS (11)
  - Injection site infection [Unknown]
  - Arthritis [Unknown]
  - Injection site pain [Unknown]
  - Injection site infection [Unknown]
  - Injection site vesicles [Unknown]
  - Injection site vesicles [Unknown]
  - Spinal operation [Unknown]
  - Finger deformity [Unknown]
  - Illness [Not Recovered/Not Resolved]
  - Peripheral swelling [Unknown]
  - Drug ineffective [Unknown]

NARRATIVE: CASE EVENT DATE: 2012
